FAERS Safety Report 5344334-5 (Version None)
Quarter: 2007Q2

REPORT INFORMATION
  Report Type: 
  Country: None (occurrence: None)
  Receive Date: 20070604
  Receipt Date: 20070522
  Transmission Date: 20071010
  Serious: Yes (Death, Life-Threatening, Hospitalization)
  Sender: FDA-Public Use
  Company Number: US-SHR-US-2007-018711

PATIENT
  Age: 79 Year
  Sex: Male

DRUGS (8)
  1. MAGNEVIST [Suspect]
     Indication: NUCLEAR MAGNETIC RESONANCE IMAGING
     Dosage: 17 ML, 1 DOSE
     Route: 042
     Dates: start: 20070520, end: 20070520
  2. MAGNEVIST [Suspect]
  3. ADVAIR DISKUS 100/50 [Concomitant]
     Route: 065
  4. DIOVAN [Concomitant]
     Route: 065
  5. FOLTX [Concomitant]
  6. ASPIRIN [Concomitant]
  7. SPIRIVA ^PFIZER^ [Concomitant]
  8. NORVASC [Concomitant]

REACTIONS (8)
  - BRAIN DEATH [None]
  - CEREBRAL ISCHAEMIA [None]
  - COMA [None]
  - COUGH [None]
  - DYSPNOEA [None]
  - ELECTROLYTE IMBALANCE [None]
  - FEELING HOT [None]
  - RESPIRATORY ARREST [None]
